FAERS Safety Report 5235465-9 (Version None)
Quarter: 2007Q1

REPORT INFORMATION
  Report Type: 
  Country: None (occurrence: None)
  Receive Date: 20070212
  Receipt Date: 20070130
  Transmission Date: 20070707
  Serious: Yes (Other)
  Sender: FDA-Public Use
  Company Number: PHBS2006JP19868

PATIENT
  Age: 11 Year
  Sex: Female

DRUGS (15)
  1. TEGRETOL [Suspect]
     Indication: EPILEPSY
     Dosage: 100 MG/DAY
     Route: 048
     Dates: start: 19971001
  2. TEGRETOL [Suspect]
     Dosage: 500 MG/DAY
     Route: 048
  3. TEGRETOL [Suspect]
     Dosage: 50 MG/DAY
     Route: 048
     Dates: end: 20000501
  4. DEPAKENE [Suspect]
     Dosage: 100 MG/DAY
     Route: 065
  5. PRIMIDONE [Suspect]
     Route: 065
  6. CERCINE [Suspect]
     Route: 065
  7. DOPASTON [Suspect]
     Route: 065
  8. DANTRIUM [Suspect]
     Route: 065
  9. MYSTAN [Suspect]
     Dosage: UNK, UNK
     Route: 065
     Dates: start: 19970101
  10. ERYTHROCIN [Suspect]
     Route: 065
  11. SPELEAR [Suspect]
     Route: 065
  12. NEUZYM [Suspect]
     Route: 065
  13. GASMOTIN [Suspect]
     Route: 065
  14. SODIUM CHLORIDE [Suspect]
     Route: 065
  15. ALEVIATIN [Concomitant]
     Route: 065
     Dates: start: 19930201, end: 19940801

REACTIONS (4)
  - DENTAL OPERATION [None]
  - GINGIVAL HYPERTROPHY [None]
  - GINGIVECTOMY [None]
  - ORAL DISCOMFORT [None]
